FAERS Safety Report 21759979 (Version 1)
Quarter: 2022Q4

REPORT INFORMATION
  Report Type: Spontaneous
  Country: CN (occurrence: CN)
  Receive Date: 20221221
  Receipt Date: 20221221
  Transmission Date: 20230112
  Serious: Yes (Hospitalization, Other)
  Sender: FDA-Public Use
  Company Number: CN-HALEON-CNCH2022APC050381

PATIENT

DRUGS (2)
  1. IBUPROFEN [Suspect]
     Active Substance: IBUPROFEN
     Indication: Pain
     Dosage: 0.3 G, BID
     Route: 048
     Dates: start: 20221126, end: 20221201
  2. IBUPROFEN [Suspect]
     Active Substance: IBUPROFEN
     Indication: Ligament sprain

REACTIONS (15)
  - Upper gastrointestinal haemorrhage [Recovering/Resolving]
  - Gastrointestinal haemorrhage [Recovering/Resolving]
  - Mouth ulceration [Recovering/Resolving]
  - Oral discomfort [Recovering/Resolving]
  - Laryngeal discomfort [Recovering/Resolving]
  - Nasopharyngitis [Recovering/Resolving]
  - Oral pain [Recovering/Resolving]
  - Sleep disorder [Recovering/Resolving]
  - Eating disorder [Recovering/Resolving]
  - Oral herpes [Recovering/Resolving]
  - Stomatitis [Recovering/Resolving]
  - Platelet count abnormal [Recovering/Resolving]
  - Ecchymosis [Recovering/Resolving]
  - Aphthous ulcer [Recovering/Resolving]
  - Faeces discoloured [Recovering/Resolving]

NARRATIVE: CASE EVENT DATE: 20220101
